FAERS Safety Report 11826384 (Version 2)
Quarter: 2015Q4

REPORT INFORMATION
  Report Type: Spontaneous
  Country: US (occurrence: US)
  Receive Date: 20151211
  Receipt Date: 20151216
  Transmission Date: 20160305
  Serious: Yes (Other)
  Sender: FDA-Public Use
  Company Number: US-PFIZER INC-2015416906

PATIENT
  Age: 49 Year
  Sex: Male
  Weight: 111.13 kg

DRUGS (1)
  1. VIAGRA [Suspect]
     Active Substance: SILDENAFIL CITRATE
     Dosage: 2 TABLETS ONE IN THE MORNING AND ONE AT NIGHT
     Dates: start: 20151114

REACTIONS (3)
  - Ejaculation disorder [Recovering/Resolving]
  - Intentional product misuse [Unknown]
  - Erection increased [Not Recovered/Not Resolved]

NARRATIVE: CASE EVENT DATE: 20151118
